FAERS Safety Report 5758249-1 (Version None)
Quarter: 2008Q2

REPORT INFORMATION
  Report Type: 
  Country: None (occurrence: None)
  Receive Date: 20080604
  Receipt Date: 20080529
  Transmission Date: 20081010
  Serious: Yes (Other)
  Sender: FDA-Public Use
  Company Number: JP-WYE-H02940008

PATIENT
  Sex: Male
  Weight: 53 kg

DRUGS (1)
  1. MYLOTARG [Suspect]
     Indication: ACUTE MYELOID LEUKAEMIA RECURRENT
     Route: 041
     Dates: start: 20061107, end: 20061107

REACTIONS (4)
  - CYTOMEGALOVIRUS ENTEROCOLITIS [None]
  - GRAFT VERSUS HOST DISEASE [None]
  - SEPSIS [None]
  - VENOOCCLUSIVE LIVER DISEASE [None]
